FAERS Safety Report 6569011-4 (Version None)
Quarter: 2010Q1

REPORT INFORMATION
  Report Type: 
  Country: None (occurrence: None)
  Receive Date: 20100203
  Receipt Date: 20100122
  Transmission Date: 20100710
  Serious: Yes (Hospitalization)
  Sender: FDA-Public Use
  Company Number: CA-CELGENEUS-028-50794-09110160

PATIENT
  Sex: Female

DRUGS (2)
  1. VIDAZA [Suspect]
     Route: 065
     Dates: start: 20090901, end: 20091008
  2. PREDNISONE [Concomitant]
     Indication: DRUG USE FOR UNKNOWN INDICATION
     Route: 065

REACTIONS (2)
  - NECROTISING FASCIITIS [None]
  - PYODERMA GANGRENOSUM [None]
